FAERS Safety Report 6713320 (Version 3)
Quarter: 2013Q4

REPORT INFORMATION
  Report Type: Spontaneous
  Country: AU (occurrence: AU)
  Receive Date: 20080729
  Receipt Date: 20131127
  Transmission Date: 20140711
  Serious: Yes (Disabling, Other)
  Sender: FDA-Public Use
  Company Number: AU-PFIZER INC-2008060347

PATIENT
  Age: 52 Year
  Sex: Male
  Weight: 100 kg

DRUGS (3)
  1. LYRICA [Suspect]
     Indication: INTERVERTEBRAL DISC DISORDER
     Dosage: 75 MG (1 CAPSULE), 2X/DAY
     Dates: start: 200606
  2. LYRICA [Suspect]
     Dosage: 150 MG (ONE CAPSULE) AND 75 MG (ONE CAPSULE), 2X/DAY
  3. LYRICA [Suspect]
     Dosage: 150 MG, 1X/DAY

REACTIONS (8)
  - Ankle fracture [Unknown]
  - Lower limb fracture [Not Recovered/Not Resolved]
  - Impaired healing [Unknown]
  - Amnesia [Not Recovered/Not Resolved]
  - Muscular weakness [Unknown]
  - Asthenia [Not Recovered/Not Resolved]
  - Tremor [Not Recovered/Not Resolved]
  - Pain [Unknown]
